FAERS Safety Report 18441559 (Version 1)
Quarter: 2020Q4

REPORT INFORMATION
  Report Type: Report from Study
  Country: US (occurrence: US)
  Receive Date: 20201029
  Receipt Date: 20201029
  Transmission Date: 20210114
  Serious: Yes (Other)
  Sender: FDA-Public Use
  Company Number: US-TEVA-2020-US-1233816

PATIENT
  Age: 60 Year
  Sex: Female

DRUGS (1)
  1. COPAXONE [Suspect]
     Active Substance: GLATIRAMER ACETATE
     Dates: start: 20200314

REACTIONS (3)
  - Injection site urticaria [Unknown]
  - Injection related reaction [Unknown]
  - Lipoedema [Not Recovered/Not Resolved]

NARRATIVE: CASE EVENT DATE: 2020
